FAERS Safety Report 24789739 (Version 1)
Quarter: 2024Q4

REPORT INFORMATION
  Report Type: Spontaneous
  Country: JP (occurrence: JP)
  Receive Date: 20241230
  Receipt Date: 20241230
  Transmission Date: 20250115
  Serious: Yes (Other)
  Sender: MYLAN
  Company Number: JP-VIATRISJAPAN-2024M1071669AA

PATIENT
  Age: 63 Year
  Sex: Female

DRUGS (3)
  1. CYSTADROPS [Suspect]
     Active Substance: CYSTEAMINE HYDROCHLORIDE
     Indication: Cystinosis
     Dosage: UNK
     Route: 047
     Dates: start: 20240722, end: 20240729
  2. CYSTEAMINE [Suspect]
     Active Substance: CYSTEAMINE
     Indication: Cystinosis
     Dosage: 400 MILLIGRAM, QD
     Route: 048
     Dates: start: 20230804
  3. CYSTEAMINE [Suspect]
     Active Substance: CYSTEAMINE
     Dosage: 1800 MILLIGRAM, QD
     Route: 048

REACTIONS (2)
  - Vitreous haemorrhage [Recovered/Resolved]
  - Acidosis [Not Recovered/Not Resolved]

NARRATIVE: CASE EVENT DATE: 20240729
